FAERS Safety Report 6230797-X (Version None)
Quarter: 2009Q2

REPORT INFORMATION
  Report Type: 
  Country: None (occurrence: None)
  Receive Date: 20090616
  Receipt Date: 20090606
  Transmission Date: 20091009
  Serious: Yes (Hospitalization)
  Sender: FDA-Public Use
  Company Number: US-JNJFOC-20090603329

PATIENT
  Sex: Female
  Weight: 83.46 kg

DRUGS (2)
  1. IBUPROFEN [Suspect]
  2. IBUPROFEN [Suspect]
     Indication: TENDONITIS

REACTIONS (2)
  - CEREBROVASCULAR ACCIDENT [None]
  - SUICIDE ATTEMPT [None]
